FAERS Safety Report 7328362-6 (Version None)
Quarter: 2011Q1

REPORT INFORMATION
  Report Type: 
  Country: None (occurrence: None)
  Receive Date: 20110222
  Receipt Date: 20110207
  Transmission Date: 20110831
  Serious: Yes (Other)
  Sender: FDA-Public Use
  Company Number: 2011PV000010

PATIENT
  Age: 10 Month
  Sex: Male

DRUGS (6)
  1. TOPOTECAN [Concomitant]
  2. DEXAMETHASONE [Concomitant]
  3. ETOPOSIDE [Concomitant]
  4. CYTARABINE [Concomitant]
  5. DEPOCYT [Suspect]
     Indication: METASTASES TO MENINGES
     Dosage: 25 MG; QOW; IT
     Route: 038
  6. GEMTUZUMAB [Concomitant]

REACTIONS (8)
  - ACUTE MYELOID LEUKAEMIA RECURRENT [None]
  - BONE MARROW TRANSPLANT [None]
  - BONE MARROW FAILURE [None]
  - PULMONARY ALVEOLAR HAEMORRHAGE [None]
  - IRRITABILITY [None]
  - MULTI-ORGAN FAILURE [None]
  - ENTEROCOCCAL BACTERAEMIA [None]
  - VENOOCCLUSIVE DISEASE [None]
